FAERS Safety Report 26165184 (Version 3)
Quarter: 2025Q4

REPORT INFORMATION
  Report Type: Spontaneous
  Country: IL (occurrence: IL)
  Receive Date: 20251216
  Receipt Date: 20251222
  Transmission Date: 20260118
  Serious: Yes (Life-Threatening, Other)
  Sender: BIOVITRUM
  Company Number: IL-BIOVITRUM-2025-IL-017503

PATIENT
  Sex: Male

DRUGS (2)
  1. AVATROMBOPAG [Suspect]
     Active Substance: AVATROMBOPAG
     Indication: Immune thrombocytopenia
     Dosage: THREE TIMES A WEEK
  2. CARBAMAZEPINE [Interacting]
     Active Substance: CARBAMAZEPINE
     Indication: Product used for unknown indication

REACTIONS (10)
  - Haemorrhage [Unknown]
  - Hypermetabolism [Unknown]
  - Drug ineffective [Unknown]
  - Immune thrombocytopenia [Unknown]
  - Condition aggravated [Unknown]
  - Drug interaction [Unknown]
  - Aortic intramural haematoma [Unknown]
  - Peripheral embolism [Unknown]
  - Thrombosis [Unknown]
  - Penetrating aortic ulcer [Unknown]

NARRATIVE: CASE EVENT DATE: 20251204
